APPROVED DRUG PRODUCT: HYDROXYUREA
Active Ingredient: HYDROXYUREA
Strength: 500MG
Dosage Form/Route: CAPSULE;ORAL
Application: A075143 | Product #001 | TE Code: AB
Applicant: BARR LABORATORIES INC
Approved: Oct 16, 1998 | RLD: No | RS: No | Type: RX